FAERS Safety Report 11967240 (Version 3)
Quarter: 2016Q1

REPORT INFORMATION
  Report Type: Spontaneous
  Country: FR (occurrence: FR)
  Receive Date: 20160127
  Receipt Date: 20160205
  Transmission Date: 20160526
  Serious: Yes (Death, Life-Threatening, Hospitalization, Other)
  Sender: FDA-Public Use
  Company Number: FR-ASTRAZENECA-2016SE08141

PATIENT
  Age: 24901 Day
  Sex: Male
  Weight: 50 kg

DRUGS (8)
  1. CORTANCYL [Suspect]
     Active Substance: PREDNISONE
     Route: 048
  2. VIREAD [Suspect]
     Active Substance: TENOFOVIR DISOPROXIL FUMARATE
     Route: 048
  3. CELLCEPT [Suspect]
     Active Substance: MYCOPHENOLATE MOFETIL\MYCOPHENOLATE MOFETIL HYDROCHLORIDE
     Route: 048
  4. PLAVIX [Suspect]
     Active Substance: CLOPIDOGREL BISULFATE
     Route: 048
  5. INEXIUM [Suspect]
     Active Substance: ESOMEPRAZOLE
     Route: 048
  6. NEBILOX [Suspect]
     Active Substance: NEBIVOLOL HYDROCHLORIDE
     Route: 048
  7. CORDARONE [Suspect]
     Active Substance: AMIODARONE HYDROCHLORIDE
     Route: 048
  8. TAHOR [Suspect]
     Active Substance: ATORVASTATIN CALCIUM
     Route: 048

REACTIONS (10)
  - Osteoporosis [Fatal]
  - Pneumonia aspiration [Fatal]
  - Cerebellar syndrome [Fatal]
  - Multiple organ dysfunction syndrome [Fatal]
  - Carotid artery aneurysm [Fatal]
  - Osteoporotic fracture [Fatal]
  - Cardio-respiratory arrest [Fatal]
  - Acute coronary syndrome [Fatal]
  - Seizure [Fatal]
  - Carotid artery thrombosis [Fatal]

NARRATIVE: CASE EVENT DATE: 20151130
